FAERS Safety Report 8782010 (Version 1)
Quarter: 2012Q4

REPORT INFORMATION
  Report Type: 
  Country: US (occurrence: US)
  Receive Date: 20120913
  Receipt Date: 20120913
  Transmission Date: 20130627
  Serious: No
  Sender: FDA-Public Use
  Company Number: US-VERTEX PHARMACEUTICAL INC.-2012-020138

PATIENT
  Sex: Male
  Weight: 102 kg

DRUGS (3)
  1. VX-950 [Suspect]
     Indication: HEPATITIS C
     Dosage: 750 mg, tid
     Route: 048
     Dates: start: 20120727
  2. PEGASYS [Concomitant]
     Indication: HEPATITIS C
     Dosage: 180 ?g, UNK
     Route: 058
     Dates: start: 20120727
  3. RIBASPHERE [Concomitant]
     Indication: HEPATITIS C
     Dosage: 600 mg, bid
     Route: 048
     Dates: start: 20120727

REACTIONS (12)
  - Influenza like illness [Unknown]
  - Headache [Unknown]
  - Anxiety [Unknown]
  - Myalgia [Unknown]
  - Sleep disorder [Unknown]
  - Paranasal sinus hypersecretion [None]
  - Flushing [Unknown]
  - Pain [Unknown]
  - Chills [Unknown]
  - Injection site rash [Unknown]
  - Injection site erythema [Unknown]
  - Fatigue [Unknown]
